FAERS Safety Report 13903616 (Version 2)
Quarter: 2017Q3

REPORT INFORMATION
  Report Type: Report from Study
  Country: CN (occurrence: CN)
  Receive Date: 20170824
  Receipt Date: 20170825
  Transmission Date: 20171127
  Serious: Yes (Death)
  Sender: FDA-Public Use
  Company Number: CN-PFIZER INC-2017365730

PATIENT

DRUGS (3)
  1. CALCIUM FOLINATE [Suspect]
     Active Substance: LEUCOVORIN CALCIUM
     Indication: LYMPHOMA
     Dosage: 30 MG, CYCLIC (Q6H)
     Route: 042
  2. METHOTREXATE SODIUM. [Suspect]
     Active Substance: METHOTREXATE SODIUM
     Indication: LYMPHOMA
     Dosage: 3000 MG/M2, CYCLIC (CIV 6?HOUR,D1)
     Route: 042
  3. PEGASPARGASE [Suspect]
     Active Substance: PEGASPARGASE
     Indication: LYMPHOMA
     Dosage: UNK, CYCLIC (2000 U/M^2; IM, D1)
     Route: 030

REACTIONS (1)
  - Toxicity to various agents [Fatal]
